FAERS Safety Report 4394990-3 (Version None)
Quarter: 2004Q3

REPORT INFORMATION
  Report Type: 
  Country: None (occurrence: None)
  Receive Date: 20040706
  Receipt Date: 20040623
  Transmission Date: 20050211
  Serious: Yes (Hospitalization, Other)
  Sender: FDA-Public Use
  Company Number: 2004042683

PATIENT
  Age: 72 Year
  Sex: Male

DRUGS (3)
  1. AZITHROMYCIN [Suspect]
     Indication: PNEUMONIA
     Dates: start: 20030530
  2. CEFEPIME 9CEFEPIME) [Suspect]
     Indication: PNEUMONIA
     Dates: start: 20030530
  3. PAZUFLOXACIN (PAZUFLOXACIN) [Concomitant]
     Indication: PNEUMONIA
     Dates: start: 20030530

REACTIONS (10)
  - ANAEMIA HAEMOLYTIC AUTOIMMUNE [None]
  - ANTI-ERYTHROCYTE ANTIBODY POSITIVE [None]
  - BLOOD LACTATE DEHYDROGENASE INCREASED [None]
  - CHROMATURIA [None]
  - COOMBS INDIRECT TEST POSITIVE [None]
  - DISSEMINATED INTRAVASCULAR COAGULATION [None]
  - DYSPNOEA [None]
  - HAEMOLYSIS [None]
  - PALPITATIONS [None]
  - PNEUMONIA [None]
